FAERS Safety Report 8941267 (Version 1)
Quarter: 2012Q4

REPORT INFORMATION
  Report Type: 
  Country: CA (occurrence: CA)
  Receive Date: 20121203
  Receipt Date: 20121203
  Transmission Date: 20130627
  Serious: No
  Sender: FDA-Public Use
  Company Number: CA-ELI_LILLY_AND_COMPANY-CA201211005947

PATIENT
  Age: 14 Year
  Sex: Male

DRUGS (2)
  1. STRATTERA [Suspect]
     Dosage: 40 mg, UNK
  2. STRATTERA [Suspect]
     Dosage: 60 mg, UNK
     Dates: start: 20121118

REACTIONS (4)
  - Tremor [Unknown]
  - Gastrooesophageal reflux disease [Unknown]
  - Aggression [Unknown]
  - Abdominal pain upper [Unknown]
